FAERS Safety Report 9912519 (Version 1)
Quarter: 2014Q1

REPORT INFORMATION
  Report Type: Report from Study
  Country: US (occurrence: US)
  Receive Date: 20140220
  Receipt Date: 20140220
  Transmission Date: 20141002
  Serious: Yes (Other)
  Sender: FDA-Public Use
  Company Number: US-ROCHE-1352143

PATIENT
  Sex: Male

DRUGS (9)
  1. AVASTIN [Suspect]
     Indication: DIABETIC RETINAL OEDEMA
     Route: 065
  2. AVASTIN [Suspect]
     Indication: RETINAL OEDEMA
  3. AMLODIPINE [Concomitant]
     Route: 048
  4. CRESTOR [Concomitant]
     Route: 048
  5. FUROSEMIDE [Concomitant]
     Route: 048
  6. GLIPIZIDE [Concomitant]
     Route: 048
  7. ISOSORBIDE MONONITRATE [Concomitant]
     Route: 048
  8. NOVOLOG [Concomitant]
     Dosage: INJECT BELOW THE SKIN
     Route: 058
  9. METOPROLOL TARTRATE [Concomitant]
     Route: 048

REACTIONS (3)
  - Ocular hyperaemia [Unknown]
  - Arthralgia [Unknown]
  - Off label use [Unknown]
